FAERS Safety Report 6184909-7 (Version None)
Quarter: 2009Q2

REPORT INFORMATION
  Report Type: 
  Country: None (occurrence: None)
  Receive Date: 20090511
  Receipt Date: 20090428
  Transmission Date: 20091009
  Serious: Yes (Hospitalization)
  Sender: FDA-Public Use
  Company Number: DK-RANBAXY-2009RR-23779

PATIENT
  Age: 66 Year
  Sex: Male

DRUGS (4)
  1. RAMIPRIL [Suspect]
     Dosage: 7.5 MG, QD
     Route: 048
  2. FURIX [Suspect]
     Dosage: 40 MG, UNK
     Route: 048
  3. METOLAZONE [Suspect]
     Dosage: 2.5 MG, QD
     Route: 048
  4. SPIRONOLACTONE [Suspect]
     Dosage: 12.5 MG, QD
     Route: 048

REACTIONS (1)
  - AZOTAEMIA [None]
